FAERS Safety Report 7088394-2 (Version None)
Quarter: 2010Q4

REPORT INFORMATION
  Report Type: 
  Country: None (occurrence: None)
  Receive Date: 20101028
  Receipt Date: 20101015
  Transmission Date: 20110411
  Serious: Yes (Other)
  Sender: FDA-Public Use
  Company Number: 020495

PATIENT
  Sex: Female

DRUGS (1)
  1. CIMZIA [Suspect]
     Dosage: (400 MG 1X/3 WEEKS SUBCUTANEOUS)
     Route: 058

REACTIONS (1)
  - PRECANCEROUS CELLS PRESENT [None]
